FAERS Safety Report 19652921 (Version 1)
Quarter: 2021Q3

REPORT INFORMATION
  Report Type: Report from Study
  Country: None (occurrence: US)
  Receive Date: 20210803
  Receipt Date: 20210803
  Transmission Date: 20211014
  Serious: Yes (Hospitalization, Other)
  Sender: FDA-Public Use
  Company Number: US-ABBVIE-21K-163-4015206-00

PATIENT
  Age: 79 Year
  Sex: Female

DRUGS (1)
  1. HUMIRA [Suspect]
     Active Substance: ADALIMUMAB
     Indication: RHEUMATOID ARTHRITIS
     Dosage: CITRATE FREE
     Route: 058

REACTIONS (5)
  - Renal disorder [Not Recovered/Not Resolved]
  - Malaise [Unknown]
  - Dialysis [Not Recovered/Not Resolved]
  - Coronary arterial stent insertion [Unknown]
  - Post procedural complication [Unknown]

NARRATIVE: CASE EVENT DATE: 202107
